FAERS Safety Report 17497214 (Version 1)
Quarter: 2020Q1

REPORT INFORMATION
  Report Type: Report from Study
  Country: NL (occurrence: NL)
  Receive Date: 20200304
  Receipt Date: 20200304
  Transmission Date: 20200409
  Serious: Yes (Hospitalization)
  Sender: FDA-Public Use
  Company Number: NL-MYLANLABS-2020M1022454

PATIENT

DRUGS (5)
  1. LEUCOVORIN                         /00566701/ [Suspect]
     Active Substance: LEUCOVORIN
     Indication: COLORECTAL CANCER
     Dosage: DATE OF LAST DOSE OF LEUCOVORIN 24/AUG/2018 DATE OF MOST RECENT DOSE OF LEUCOVORIN PRIOR TO SAE (NAU
     Route: 065
     Dates: start: 20180824
  2. IRINOTECAN [Suspect]
     Active Substance: IRINOTECAN
     Indication: COLORECTAL CANCER
     Dosage: DATE OF LAST DOSE: 27/SEP/2018 DATE OF MOST RECENT DOSE OF IRINOTECAN PRIOR TO SAE (NAUSEA AND DECOM
     Route: 065
     Dates: start: 20180824
  3. FLUOROURACIL. [Suspect]
     Active Substance: FLUOROURACIL
     Indication: COLORECTAL CANCER
     Dosage: LAST DOSE ADMINISTERED ON 24/AUG/2018 DATE OF MOST RECENT DOSE OF 5-FU PRIOR TO SAE (NAUSEA AND DECO
     Route: 065
     Dates: start: 20180824
  4. OXALIPLATIN. [Suspect]
     Active Substance: OXALIPLATIN
     Indication: COLORECTAL CANCER
     Dosage: LAST DOSE ADMINISTERED ON 24/AUG/2018 DATE OF MOST RECENT DOSE OF OXALIPLATIN PRIOR TO SAE (NAUSEA A
     Route: 065
     Dates: start: 20180824
  5. BEVACIZUMAB. [Suspect]
     Active Substance: BEVACIZUMAB
     Indication: COLORECTAL CANCER
     Dosage: DATE OF LAST DOSE: 27/SEP/2018 DATE OF MOST RECENT DOSE OF BEVACIZUMAB PRIOR TO SAE (NAUSEA AND DECO
     Route: 065
     Dates: start: 20180824

REACTIONS (4)
  - Pulmonary embolism [Recovered/Resolved]
  - Dyspnoea [Unknown]
  - Nausea [Unknown]
  - Cardiac failure [Recovered/Resolved]

NARRATIVE: CASE EVENT DATE: 20180825
